FAERS Safety Report 6651435-8 (Version None)
Quarter: 2010Q1

REPORT INFORMATION
  Report Type: 
  Country: None (occurrence: None)
  Receive Date: 20100325
  Receipt Date: 20100309
  Transmission Date: 20100710
  Serious: Yes (Hospitalization)
  Sender: FDA-Public Use
  Company Number: DK-ROCHE-687056

PATIENT
  Sex: Female
  Weight: 52.6 kg

DRUGS (8)
  1. BEVACIZUMAB [Suspect]
     Indication: NON-SMALL CELL LUNG CANCER
     Route: 065
     Dates: start: 20091106
  2. PEMETREXED [Suspect]
     Indication: NON-SMALL CELL LUNG CANCER
     Dosage: FORM: VIAL
     Route: 042
     Dates: start: 20091106
  3. CISPLATIN [Suspect]
     Indication: NON-SMALL CELL LUNG CANCER
     Route: 042
     Dates: start: 20091106
  4. FOLIC ACID [Concomitant]
     Indication: PROPHYLAXIS
  5. VITAMIN B-12 [Concomitant]
     Indication: PROPHYLAXIS
  6. PREDNISOLON [Concomitant]
     Indication: PROPHYLAXIS
  7. MANDOLGIN [Concomitant]
     Indication: PAIN
     Dates: start: 20091016
  8. PINEX [Concomitant]
     Indication: PAIN
     Dates: start: 20100203

REACTIONS (1)
  - HYPERKALAEMIA [None]
